FAERS Safety Report 19177137 (Version 2)
Quarter: 2021Q2

REPORT INFORMATION
  Report Type: Spontaneous
  Country: US (occurrence: US)
  Receive Date: 20210425
  Receipt Date: 20210608
  Transmission Date: 20210717
  Serious: No
  Sender: FDA-Public Use
  Company Number: US-JNJFOC-20210434052

PATIENT
  Age: 20 Year
  Sex: Female

DRUGS (3)
  1. IMURAN [Concomitant]
     Active Substance: AZATHIOPRINE
     Indication: INFLAMMATION
     Route: 065
     Dates: start: 202001
  2. STELARA [Suspect]
     Active Substance: USTEKINUMAB
  3. STELARA [Suspect]
     Active Substance: USTEKINUMAB
     Indication: CROHN^S DISEASE
     Dosage: LATEST RECEIVED DOSE ON 28?APR?2021
     Route: 058
     Dates: start: 20200913, end: 20210219

REACTIONS (5)
  - Illness [Unknown]
  - Product dose omission issue [Unknown]
  - Accidental exposure to product [Unknown]
  - Dyspepsia [Unknown]
  - Syringe issue [Unknown]

NARRATIVE: CASE EVENT DATE: 20210416
